FAERS Safety Report 18615928 (Version 1)
Quarter: 2020Q4

REPORT INFORMATION
  Report Type: Spontaneous
  Country: PL (occurrence: PL)
  Receive Date: 20201214
  Receipt Date: 20201214
  Transmission Date: 20210114
  Serious: Yes (Other)
  Sender: FDA-Public Use
  Company Number: NVSC2020PL326917

PATIENT
  Age: 20 Year
  Sex: Female
  Weight: 54 kg

DRUGS (1)
  1. ACIX [ACICLOVIR SODIUM] [Suspect]
     Active Substance: ACYCLOVIR SODIUM
     Indication: HERPES SIMPLEX MENINGITIS
     Dosage: 500 MG, Q8H
     Route: 042
     Dates: start: 20171114, end: 20171118

REACTIONS (2)
  - Blood creatinine increased [Recovered/Resolved]
  - Back pain [Recovered/Resolved]
